FAERS Safety Report 18754103 (Version 3)
Quarter: 2021Q1

REPORT INFORMATION
  Report Type: Spontaneous
  Country: US (occurrence: US)
  Receive Date: 20210119
  Receipt Date: 20210314
  Transmission Date: 20210419
  Serious: Yes (Other)
  Sender: FDA-Public Use
  Company Number: US-JNJFOC-20210117136

PATIENT
  Age: 66 Year
  Sex: Male
  Weight: 99.88 kg

DRUGS (4)
  1. MELOXICAM. [Concomitant]
     Active Substance: MELOXICAM
     Indication: SURGERY
     Dosage: UNK
  2. METHOCARBAMOL. [Concomitant]
     Active Substance: METHOCARBAMOL
     Indication: SURGERY
  3. XARELTO [Suspect]
     Active Substance: RIVAROXABAN
     Indication: THROMBOSIS PROPHYLAXIS
     Dosage: 10 MG, QD
     Route: 048
     Dates: start: 20201229, end: 20210108
  4. TRAMADOL. [Concomitant]
     Active Substance: TRAMADOL
     Indication: SURGERY

REACTIONS (4)
  - Urticaria [Recovered/Resolved]
  - Post procedural haemorrhage [Recovered/Resolved]
  - Product use complaint [Unknown]
  - Rash pruritic [Recovered/Resolved]

NARRATIVE: CASE EVENT DATE: 20201231
